FAERS Safety Report 7457640-5 (Version None)
Quarter: 2011Q2

REPORT INFORMATION
  Report Type: 
  Country: None (occurrence: None)
  Receive Date: 20110504
  Receipt Date: 20110428
  Transmission Date: 20111010
  Serious: Yes (Disabling)
  Sender: FDA-Public Use
  Company Number: CA-ROCHE-665687

PATIENT
  Sex: Female
  Weight: 82.5 kg

DRUGS (10)
  1. IBUPROFEN [Concomitant]
     Dates: start: 20080801
  2. ADVIL LIQUI-GELS [Concomitant]
     Dates: start: 20080901
  3. PAMIDRONATE DISODIUM [Concomitant]
     Dosage: DRUG NAME- PAMIDRONATE- Q6 WEEKS
     Route: 042
     Dates: start: 20080726
  4. INSULIN [Concomitant]
     Dosage: DRUG: ^INSULIN LA^ DAILY DOSE: 40 UNITS
     Dates: start: 20090301
  5. METFORMIN HYDROCHLORIDE [Concomitant]
     Dates: start: 19940101
  6. GRAVOL TAB [Concomitant]
     Dates: start: 20090416
  7. PERTUZUMAB [Suspect]
     Dosage: FORM: INFUSION SOLUTION; LAST DOSE PRIOR TO SAE:30 SEP 2009
     Route: 042
     Dates: start: 20080716, end: 20091028
  8. INSULIN RAPID [Concomitant]
     Dosage: DRUG: INSULIN NOVORAPID; DAILY DOSE: 15 UNITS
     Dates: start: 20090301
  9. ZANTAC [Concomitant]
     Dates: start: 20090416
  10. TRASTUZUMAB [Suspect]
     Dosage: FORM: INFUSION SOLUTION; LAST DOSE PRIOR TO SAE:30 SEP 2009
     Route: 042
     Dates: start: 20090325, end: 20091028

REACTIONS (1)
  - OSMOTIC DEMYELINATION SYNDROME [None]
